FAERS Safety Report 5011526-4 (Version None)
Quarter: 2006Q2

REPORT INFORMATION
  Report Type: 
  Country: None (occurrence: None)
  Receive Date: 20060524
  Receipt Date: 20060517
  Transmission Date: 20061013
  Serious: No
  Sender: FDA-Public Use
  Company Number: TPA2006A00844

PATIENT
  Age: 47 Year
  Sex: Male
  Weight: 77.1115 kg

DRUGS (3)
  1. ACTOS [Suspect]
     Indication: DIABETES MELLITUS NON-INSULIN-DEPENDENT
     Dosage: 45 MG, 1 IN 1 D, PER ORAL
     Route: 048
     Dates: start: 20050101
  2. UNKNOWN VITAMINS (VITAMINIS NOS) [Concomitant]
  3. UNKNOWN SLEEP MEDICATIONS (ALL OTHER THERAPEUTICS PRODUCTS) [Concomitant]

REACTIONS (2)
  - DRUG DISPENSING ERROR [None]
  - PHARMACEUTICAL PRODUCT COMPLAINT [None]
